FAERS Safety Report 17799522 (Version 1)
Quarter: 2020Q2

REPORT INFORMATION
  Report Type: Spontaneous
  Country: US (occurrence: US)
  Receive Date: 20200518
  Receipt Date: 20200518
  Transmission Date: 20200714
  Serious: No
  Sender: FDA-Public Use
  Company Number: US-THERAPEUTICSMD-2020TMD01828

PATIENT
  Sex: Female
  Weight: 48.07 kg

DRUGS (5)
  1. CAFFEINE. [Suspect]
     Active Substance: CAFFEINE
     Dosage: UNK
     Dates: end: 2020
  2. CLONAZEPAM. [Suspect]
     Active Substance: CLONAZEPAM
     Indication: NERVOUSNESS
     Dosage: 0.125 MG, AS NEEDED
     Dates: start: 202003
  3. CAFFEINE. [Suspect]
     Active Substance: CAFFEINE
     Dosage: 1 CUP OF COFFEE, 1X/DAY
     Dates: start: 2020
  4. BIJUVA [Suspect]
     Active Substance: ESTRADIOL\PROGESTERONE
     Indication: MENOPAUSE
     Dosage: 1 CAPSULES, 1X/DAY BEFORE BED
     Route: 048
     Dates: start: 2019, end: 202004
  5. BIJUVA [Suspect]
     Active Substance: ESTRADIOL\PROGESTERONE
     Indication: INSOMNIA
     Dosage: 1 CAPSULES, EVERY 48 HOURS
     Route: 048
     Dates: start: 202004

REACTIONS (6)
  - Breast tenderness [Not Recovered/Not Resolved]
  - Breast discomfort [Not Recovered/Not Resolved]
  - Nervousness [Unknown]
  - Off label use [Not Recovered/Not Resolved]
  - Breast pain [Not Recovered/Not Resolved]
  - Drug interaction [Not Recovered/Not Resolved]

NARRATIVE: CASE EVENT DATE: 2019
